FAERS Safety Report 4617121-0 (Version None)
Quarter: 2005Q1

REPORT INFORMATION
  Report Type: 
  Country: None (occurrence: None)
  Receive Date: 20050323
  Receipt Date: 20050208
  Transmission Date: 20050727
  Serious: Yes (Death, Life-Threatening)
  Sender: FDA-Public Use
  Company Number: JP-BRISTOL-MYERS SQUIBB COMPANY-12856498

PATIENT
  Age: 74 Year
  Sex: Male

DRUGS (5)
  1. TAXOL [Suspect]
     Indication: LUNG NEOPLASM MALIGNANT
     Route: 041
     Dates: start: 20050111, end: 20050111
  2. PARAPLATIN [Suspect]
     Indication: LUNG NEOPLASM MALIGNANT
     Route: 041
     Dates: start: 20050111, end: 20050111
  3. KYTRIL [Concomitant]
     Route: 041
     Dates: start: 20050111, end: 20050111
  4. DECADRON [Concomitant]
     Route: 041
     Dates: start: 20050111, end: 20050111
  5. GASTER [Concomitant]
     Route: 041
     Dates: start: 20050111, end: 20050111

REACTIONS (2)
  - INTERSTITIAL LUNG DISEASE [None]
  - PANCYTOPENIA [None]
